FAERS Safety Report 21559283 (Version 1)
Quarter: 2022Q4

REPORT INFORMATION
  Report Type: Spontaneous
  Country: JP (occurrence: JP)
  Receive Date: 20221107
  Receipt Date: 20221107
  Transmission Date: 20230113
  Serious: Yes (Hospitalization, Other)
  Sender: FDA-Public Use
  Company Number: JP-MSNLABS-2022MSNLIT01339

PATIENT

DRUGS (5)
  1. CAPECITABINE [Suspect]
     Active Substance: CAPECITABINE
     Indication: Rectal cancer
     Dosage: 2000 MG/M2 ON DAYS 1-14, EVERY 3 WEEKS
     Route: 048
  2. BEVACIZUMAB [Suspect]
     Active Substance: BEVACIZUMAB
     Indication: Rectal cancer
     Route: 065
  3. OXALIPLATIN [Suspect]
     Active Substance: OXALIPLATIN
     Indication: Rectal cancer
     Route: 065
  4. FLUOROURACIL\IRINOTECAN\LEUCOVORIN [Suspect]
     Active Substance: FLUOROURACIL\IRINOTECAN\LEUCOVORIN
     Indication: Rectal cancer
     Route: 065
  5. AFLIBERCEPT [Suspect]
     Active Substance: AFLIBERCEPT
     Indication: Rectal cancer
     Route: 065

REACTIONS (9)
  - Disease progression [Unknown]
  - Splenomegaly [Unknown]
  - Hepatomegaly [Unknown]
  - Stomal varices [Unknown]
  - Stoma site haemorrhage [Unknown]
  - Venoocclusive liver disease [Unknown]
  - Portal hypertension [Unknown]
  - Platelet count decreased [Unknown]
  - Neuropathy peripheral [Unknown]
